FAERS Safety Report 10757402 (Version 1)
Quarter: 2015Q1

REPORT INFORMATION
  Report Type: Spontaneous
  Country: AU (occurrence: None)
  Receive Date: 20150130
  Receipt Date: 20150130
  Transmission Date: 20150721
  Serious: Yes (Hospitalization)
  Sender: FDA-Public Use
  Company Number: AU-2015VAL000044

PATIENT
  Age: 63 Year
  Sex: Male

DRUGS (1)
  1. CARBAMAZEPINE (CARBAMAZEPINE) UNKNOWN [Suspect]
     Active Substance: CARBAMAZEPINE
     Indication: COMPLEX PARTIAL SEIZURES

REACTIONS (6)
  - Allergic granulomatous angiitis [None]
  - Hepatitis [None]
  - Eosinophil count increased [None]
  - Pancreatitis [None]
  - Chest pain [None]
  - Delirium [None]
